FAERS Safety Report 5023895-X (Version None)
Quarter: 2006Q2

REPORT INFORMATION
  Report Type: 
  Country: None (occurrence: None)
  Receive Date: 20060607
  Receipt Date: 20060526
  Transmission Date: 20061013
  Serious: Yes (Death, Hospitalization)
  Sender: FDA-Public Use
  Company Number: 2006US001107

PATIENT
  Age: 41 Year
  Sex: Male

DRUGS (1)
  1. PROGRAF [Suspect]
     Indication: PROPHYLAXIS AGAINST TRANSPLANT REJECTION

REACTIONS (12)
  - ABDOMINAL PAIN [None]
  - ACIDOSIS [None]
  - CHORIOMENINGITIS LYMPHOCYTIC [None]
  - DELIRIUM [None]
  - FOLLICULITIS [None]
  - HYPOXIA [None]
  - JOINT EFFUSION [None]
  - LEUKOCYTOSIS [None]
  - LUNG INFILTRATION [None]
  - RASH PUSTULAR [None]
  - RESPIRATORY DISTRESS [None]
  - THROMBOCYTOPENIA [None]
